FAERS Safety Report 8829899 (Version 1)
Quarter: 2012Q4

REPORT INFORMATION
  Report Type: 
  Country: AU (occurrence: AU)
  Receive Date: 20121008
  Receipt Date: 20121008
  Transmission Date: 20130627
  Serious: Yes (Other)
  Sender: FDA-Public Use
  Company Number: AU-PFIZER INC-2012246661

PATIENT
  Sex: Female

DRUGS (1)
  1. XANAX [Suspect]
     Dosage: UNK

REACTIONS (2)
  - Theft [Unknown]
  - Crime [Unknown]
